FAERS Safety Report 9075196 (Version 1)
Quarter: 2013Q1

REPORT INFORMATION
  Report Type: Spontaneous
  Country: US (occurrence: US)
  Receive Date: 20130129
  Receipt Date: 20130129
  Transmission Date: 20140127
  Serious: Yes (Hospitalization)
  Sender: FDA-Public Use
  Company Number: US-AMGEN-USASP2011031087

PATIENT
  Age: 57 Year
  Sex: Male

DRUGS (3)
  1. ENBREL [Suspect]
     Indication: RHEUMATOID ARTHRITIS
     Dosage: 50 MG, QWK
     Dates: start: 201104, end: 2011
  2. ASPIRIN [Concomitant]
  3. SYNTHROID [Concomitant]
     Dosage: UNK

REACTIONS (1)
  - Atrial fibrillation [Unknown]
